FAERS Safety Report 7370428-9 (Version None)
Quarter: 2011Q1

REPORT INFORMATION
  Report Type: 
  Country: None (occurrence: None)
  Receive Date: 20110323
  Receipt Date: 20110216
  Transmission Date: 20110831
  Serious: Yes (Other)
  Sender: FDA-Public Use
  Company Number: US-BAYER-201031637NA

PATIENT
  Sex: Female
  Weight: 86.168 kg

DRUGS (8)
  1. YAZ [Suspect]
     Indication: PREMENSTRUAL SYNDROME
  2. NSAID'S [Concomitant]
     Dosage: UNK UNK, PRN
  3. BENZONATATE [Concomitant]
     Dosage: 200 MG, UNK
  4. CIPROFLOXACIN [Concomitant]
     Dosage: 250 MG, UNK
  5. YAZ [Suspect]
     Indication: ACNE
     Dosage: UNK UNK, UNK
     Route: 048
     Dates: start: 20081201, end: 20090801
  6. METHYLPREDNIS [Concomitant]
     Dosage: 4 MG, UNK
  7. YASMIN [Suspect]
     Dosage: UNK
     Dates: start: 20080901, end: 20090901
  8. PRISTIQ [Concomitant]
     Indication: DEPRESSION
     Dosage: UNK
     Dates: start: 20090101

REACTIONS (6)
  - CHOLELITHIASIS [None]
  - GALLBLADDER DISORDER [None]
  - ABDOMINAL PAIN UPPER [None]
  - BILIARY COLIC [None]
  - CHOLECYSTITIS [None]
  - PAIN [None]
